FAERS Safety Report 15183922 (Version 2)
Quarter: 2018Q3

REPORT INFORMATION
  Report Type: Report from Study
  Country: US (occurrence: US)
  Receive Date: 20180723
  Receipt Date: 20180912
  Transmission Date: 20181010
  Serious: Yes (Hospitalization, Other)
  Sender: FDA-Public Use
  Company Number: US-TAKEDA-2018TUS022666

PATIENT
  Age: 52 Year
  Sex: Female

DRUGS (4)
  1. PANTOPRAZOLE [Concomitant]
     Active Substance: PANTOPRAZOLE
     Dosage: 40 MG, UNK
  2. FA                                 /00024201/ [Concomitant]
     Dosage: 1 MG, UNK
  3. VEDOLIZUMAB [Suspect]
     Active Substance: VEDOLIZUMAB
     Indication: COLITIS ULCERATIVE
     Dosage: 300 MG, UNK
     Route: 042
     Dates: start: 201603, end: 201607
  4. FERROUS SULFATE. [Concomitant]
     Active Substance: FERROUS SULFATE
     Dosage: 325 MG, UNK

REACTIONS (4)
  - Oesophageal perforation [Recovered/Resolved]
  - Chest pain [Unknown]
  - Post procedural infection [Unknown]
  - Procedural complication [Recovered/Resolved]

NARRATIVE: CASE EVENT DATE: 2016
